FAERS Safety Report 18455148 (Version 1)
Quarter: 2020Q4

REPORT INFORMATION
  Report Type: Spontaneous
  Country: US (occurrence: US)
  Receive Date: 20201103
  Receipt Date: 20201103
  Transmission Date: 20210114
  Serious: Yes (Disabling, Other)
  Sender: FDA-Public Use
  Company Number: US-SA-2020SA301073

PATIENT

DRUGS (1)
  1. GOLD BOND ORIGINAL STRENGTH POWDER [Suspect]
     Active Substance: MENTHOL\ZINC OXIDE
     Indication: PERSONAL HYGIENE
     Dosage: UNK
     Dates: start: 1970, end: 1990

REACTIONS (9)
  - Ascites [Unknown]
  - Pain [Unknown]
  - Condition aggravated [Unknown]
  - Injury [Not Recovered/Not Resolved]
  - Pleural effusion [Unknown]
  - Pleural thickening [Unknown]
  - Emotional distress [Unknown]
  - Loss of personal independence in daily activities [Unknown]
  - Pleural mesothelioma malignant [Unknown]

NARRATIVE: CASE EVENT DATE: 2020
